FAERS Safety Report 19107818 (Version 1)
Quarter: 2021Q2

REPORT INFORMATION
  Report Type: Spontaneous
  Country: US (occurrence: US)
  Receive Date: 20210408
  Receipt Date: 20210408
  Transmission Date: 20210717
  Serious: Yes (Other)
  Sender: FDA-Public Use
  Company Number: None

PATIENT
  Sex: Female
  Weight: 67.5 kg

DRUGS (7)
  1. PROTONIX [Concomitant]
     Active Substance: PANTOPRAZOLE SODIUM
  2. VITAMIN E [Concomitant]
     Active Substance: .ALPHA.-TOCOPHEROL
  3. TOPROL XL [Concomitant]
     Active Substance: METOPROLOL SUCCINATE
  4. COMBIPATCH [Concomitant]
     Active Substance: ESTRADIOL\NORETHINDRONE ACETATE
  5. METOPROLOL SUCCINATE EXTENDED RELEASE 25MG (TOPROL XL) [Suspect]
     Active Substance: METOPROLOL SUCCINATE
     Indication: HYPERTENSION
  6. VENTOLIN [Concomitant]
     Active Substance: ALBUTEROL SULFATE
  7. MULTIVITAMIN [Concomitant]
     Active Substance: VITAMINS

REACTIONS (4)
  - Product substitution issue [None]
  - Palpitations [None]
  - Headache [None]
  - Dizziness [None]
